FAERS Safety Report 7453693-9 (Version None)
Quarter: 2011Q2

REPORT INFORMATION
  Report Type: 
  Country: None (occurrence: None)
  Receive Date: 20110502
  Receipt Date: 20110107
  Transmission Date: 20111010
  Serious: No
  Sender: FDA-Public Use
  Company Number: US-ASTRAZENECA-2011SE01546

PATIENT
  Age: 22 Year
  Sex: Male

DRUGS (1)
  1. NEXIUM [Suspect]
     Route: 048

REACTIONS (5)
  - GASTROENTERITIS VIRAL [None]
  - FATIGUE [None]
  - PYREXIA [None]
  - MALAISE [None]
  - ABDOMINAL DISCOMFORT [None]
